FAERS Safety Report 14149583 (Version 2)
Quarter: 2017Q4

REPORT INFORMATION
  Report Type: Report from Study
  Country: IT (occurrence: IT)
  Receive Date: 20171101
  Receipt Date: 20171122
  Transmission Date: 20180321
  Serious: Yes (Hospitalization, Other)
  Sender: FDA-Public Use
  Company Number: IT-AMGEN-ITACT2017162101

PATIENT
  Age: 63 Year
  Sex: Female

DRUGS (12)
  1. ENALAPRIL + HIDROCLOROTIAZIDA [Concomitant]
     Dosage: 20 MG/12.5 MG, UNK
  2. 5 FU [Suspect]
     Active Substance: FLUOROURACIL
     Dosage: 720 MG, UNK
     Route: 040
     Dates: start: 20171010, end: 20171012
  3. METOPROLOLO [Concomitant]
     Dosage: 100 MG, UNK
  4. TACHIDOL [Concomitant]
     Active Substance: ACETAMINOPHEN\CODEINE PHOSPHATE
     Dosage: UNK
  5. OXALIPLATIN. [Suspect]
     Active Substance: OXALIPLATIN
     Indication: COLORECTAL CANCER METASTATIC
     Dosage: UNK
     Route: 042
  6. 5 FU [Suspect]
     Active Substance: FLUOROURACIL
     Dosage: 2100 MG, UNK
     Route: 042
     Dates: start: 20171010, end: 20171012
  7. NEULASTA [Concomitant]
     Active Substance: PEGFILGRASTIM
     Dosage: UNK
  8. PANITUMUMAB [Suspect]
     Active Substance: PANITUMUMAB
     Dosage: 250 MG, UNK
     Route: 042
     Dates: start: 20171010, end: 20171012
  9. BASSADO [Concomitant]
     Active Substance: DOXYCYCLINE HYCLATE
     Dosage: 100 MG, UNK
  10. PANITUMUMAB [Suspect]
     Active Substance: PANITUMUMAB
     Indication: COLORECTAL CANCER METASTATIC
     Dosage: UNK
     Route: 042
  11. OXALIPLATIN. [Suspect]
     Active Substance: OXALIPLATIN
     Dosage: 150 MG, UNK
     Route: 042
     Dates: start: 20171010, end: 20171012
  12. 5 FU [Suspect]
     Active Substance: FLUOROURACIL
     Indication: COLORECTAL CANCER METASTATIC
     Dosage: UNK
     Route: 042

REACTIONS (4)
  - Diarrhoea [Recovered/Resolved]
  - Fatigue [Recovered/Resolved]
  - Pyrexia [Recovered/Resolved]
  - Pancytopenia [Recovered/Resolved]

NARRATIVE: CASE EVENT DATE: 20171020
